FAERS Safety Report 7280456-X (Version None)
Quarter: 2011Q1

REPORT INFORMATION
  Report Type: 
  Country: None (occurrence: None)
  Receive Date: 20110208
  Receipt Date: 20110113
  Transmission Date: 20110831
  Serious: Yes (Death)
  Sender: FDA-Public Use
  Company Number: US-ROCHE-709006

PATIENT
  Age: 50 Year
  Sex: Female

DRUGS (13)
  1. BEVACIZUMAB [Suspect]
     Dosage: CYCLE 2
     Route: 042
  2. PACLITAXEL [Suspect]
     Route: 042
  3. CISPLATIN [Suspect]
     Dosage: CYCLE 2, DAY 2
     Route: 033
     Dates: start: 20100219
  4. CARBOPLATIN [Suspect]
     Indication: FALLOPIAN TUBE CANCER
     Dosage: DOSE: 5 AUC OVER 30 MINUTES ON DAY 1, CYCLE 3
     Route: 042
  5. CARBOPLATIN [Suspect]
     Dosage: DOSE: 5 AUC
     Route: 042
     Dates: start: 20100506
  6. CISPLATIN [Suspect]
     Indication: FALLOPIAN TUBE CANCER
     Dosage: CYCLE 1, DAY 2
     Route: 033
     Dates: start: 20100128
  7. MORPHINE [Suspect]
     Route: 065
  8. OXYCODONE HCL AND ACETAMINOPHEN [Suspect]
     Dosage: 5/325 1- 2 Q 4-6 HOURS PRN
     Route: 048
  9. BEVACIZUMAB [Suspect]
     Dosage: CYCLE 5, MISSED CYCLE 3 AND 4
     Route: 042
     Dates: start: 20100506
  10. BEVACIZUMAB [Suspect]
     Indication: FALLOPIAN TUBE CANCER
     Dosage: CYCLE 1
     Route: 042
     Dates: start: 20100128
  11. PACLITAXEL [Suspect]
     Indication: FALLOPIAN TUBE CANCER
     Dosage: OVER 3 HOURS ON DAY 1
     Route: 042
     Dates: start: 20100128
  12. PACLITAXEL [Suspect]
     Dosage: CYCLE 5 DAY 8, MISSED CYCLE 3 AND 4, ROUTE: IP
     Route: 042
     Dates: start: 20100513
  13. CARBOPLATIN [Suspect]
     Dosage: DOSE 5 AUC, CYCLE 4
     Route: 042

REACTIONS (1)
  - SUDDEN DEATH [None]
